FAERS Safety Report 9003971 (Version 2)
Quarter: 2013Q1

REPORT INFORMATION
  Report Type: Spontaneous
  Country: US (occurrence: US)
  Receive Date: 20130109
  Receipt Date: 20130122
  Transmission Date: 20140127
  Serious: No
  Sender: FDA-Public Use
  Company Number: US-009507513-1301USA001304

PATIENT
  Age: 21 Year
  Sex: Female
  Weight: 72.11 kg

DRUGS (1)
  1. NEXPLANON [Suspect]
     Indication: CONTRACEPTION
     Dosage: 1 TIME INSERTION ON HER LEFT ARM
     Dates: start: 20121119

REACTIONS (1)
  - Metrorrhagia [Not Recovered/Not Resolved]
